FAERS Safety Report 16907124 (Version 1)
Quarter: 2019Q4

REPORT INFORMATION
  Report Type: Spontaneous
  Country: KR (occurrence: KR)
  Receive Date: 20191011
  Receipt Date: 20191011
  Transmission Date: 20200122
  Serious: Yes (Life-Threatening, Hospitalization, Other)
  Sender: FDA-Public Use
  Company Number: KR-ALVOGEN-2019-ALVOGEN-101631

PATIENT
  Age: 17 Year
  Sex: Female

DRUGS (3)
  1. ACETYLCYSTEINE. [Suspect]
     Active Substance: ACETYLCYSTEINE
     Indication: DIZZINESS
     Dosage: INTRAVENOUS INFUSION OF NAC  50 MG/KG OVER 4H
     Route: 041
  2. ACETYLCYSTEINE. [Suspect]
     Active Substance: ACETYLCYSTEINE
     Indication: DIZZINESS
     Dosage: INTRAVENOUS INFUSION OF NAC 100 MG/KG AS A BOLUS OVER 16H
     Route: 041
  3. ACETYLCYSTEINE. [Suspect]
     Active Substance: ACETYLCYSTEINE
     Indication: DIZZINESS
     Dosage: INTRAVENOUS INFUSION OF NAC 150 MG/KG AS A BOLUS
     Route: 040

REACTIONS (7)
  - Chest discomfort [Recovered/Resolved]
  - Dyspnoea [Recovered/Resolved]
  - Nausea [Recovered/Resolved]
  - Anaphylactoid reaction [Recovered/Resolved]
  - Vomiting [Recovered/Resolved]
  - Hypotension [Recovered/Resolved]
  - Urticaria [Recovered/Resolved]
